FAERS Safety Report 8683738 (Version 2)
Quarter: 2012Q4

REPORT INFORMATION
  Report Type: 
  Country: CA (occurrence: CA)
  Receive Date: 20120726
  Receipt Date: 20121018
  Transmission Date: 20130627
  Serious: Yes (Other)
  Sender: FDA-Public Use
  Company Number: PHHY2012CA051799

PATIENT
  Sex: Female

DRUGS (2)
  1. SANDOSTATIN LAR [Suspect]
     Indication: PANCREATIC CARCINOMA
     Dosage: 30 mg, every 3 weeks
     Route: 030
     Dates: start: 20110210
  2. SANDOSTATIN LAR [Suspect]
     Dosage: 40 mg, once in a month
     Route: 030

REACTIONS (5)
  - Blood pressure decreased [Unknown]
  - Weight decreased [Unknown]
  - Memory impairment [Unknown]
  - Cachexia [Unknown]
  - Asthenia [Unknown]
